FAERS Safety Report 24353969 (Version 3)
Quarter: 2024Q4

REPORT INFORMATION
  Report Type: Spontaneous
  Country: BR (occurrence: BR)
  Receive Date: 20240923
  Receipt Date: 20241001
  Transmission Date: 20250115
  Serious: Yes (Life-Threatening, Other)
  Sender: NOVARTIS
  Company Number: BR-002147023-NVSC2024BR188417

PATIENT
  Sex: Female

DRUGS (3)
  1. BETOPTIC S [Suspect]
     Active Substance: BETAXOLOL HYDROCHLORIDE
     Indication: Ocular hypertension
     Dosage: 2.8 MILLIGRAM PER MILLILITRE (OPHTHALMIC SUSPENSION WITH DROP VIAL OPAQUE PLASTIC X 5 ML) (0.25)
     Route: 065
  2. TIMOLOL [Suspect]
     Active Substance: TIMOLOL\TIMOLOL MALEATE
     Indication: Product used for unknown indication
     Dosage: UNK
     Route: 065
  3. BRIMONIDINE TARTRATE [Suspect]
     Active Substance: BRIMONIDINE TARTRATE
     Indication: Product used for unknown indication
     Dosage: UNK (MD)
     Route: 065

REACTIONS (11)
  - Near death experience [Not Recovered/Not Resolved]
  - Dyspnoea [Unknown]
  - Application site pain [Unknown]
  - Eye irritation [Unknown]
  - Asthma [Unknown]
  - Bradycardia [Unknown]
  - Dizziness [Unknown]
  - Depression [Unknown]
  - Illness [Unknown]
  - Eye pain [Not Recovered/Not Resolved]
  - Product availability issue [Unknown]
